FAERS Safety Report 12663127 (Version 1)
Quarter: 2016Q3

REPORT INFORMATION
  Report Type: Spontaneous
  Country: US (occurrence: None)
  Receive Date: 20160817
  Receipt Date: 20160817
  Transmission Date: 20161109
  Serious: Yes (Other)
  Sender: FDA-Public Use
  Company Number: None

PATIENT
  Age: 50 Year
  Sex: Female

DRUGS (2)
  1. JUBLIA TRIAMCINOLONE 0.025% CREAM MIXED WITH CLOTRIMAZOLE 1% CREAM [Concomitant]
  2. OTEZLA [Suspect]
     Active Substance: APREMILAST
     Indication: PSORIASIS
     Route: 048
     Dates: start: 20160713, end: 20160727

REACTIONS (4)
  - Headache [None]
  - Abdominal pain upper [None]
  - Upper respiratory tract infection [None]
  - Diarrhoea [None]

NARRATIVE: CASE EVENT DATE: 20160718
